FAERS Safety Report 6123200-1 (Version None)
Quarter: 2009Q1

REPORT INFORMATION
  Report Type: 
  Country: None (occurrence: None)
  Receive Date: 20090318
  Receipt Date: 20090312
  Transmission Date: 20090719
  Serious: Yes (Other)
  Sender: FDA-Public Use
  Company Number: CA-ALLERGAN-0903517US

PATIENT
  Sex: Male

DRUGS (6)
  1. HYDROCORTISONE UNSPEC [Suspect]
     Indication: ECZEMA
     Route: 061
  2. DESONIDE [Suspect]
     Indication: ECZEMA
     Route: 061
  3. CLOBETASOL 0.05% [Suspect]
     Indication: ECZEMA
     Route: 061
  4. BETAMETHASONE DIPROPIONATE [Suspect]
     Indication: ECZEMA
     Route: 061
  5. BETAMETHASONE VALERATE [Suspect]
     Indication: ECZEMA
     Route: 061
  6. MOMETASONE FUROATE [Suspect]
     Indication: ECZEMA
     Route: 061

REACTIONS (2)
  - CUSHING'S SYNDROME [None]
  - DRUG INEFFECTIVE [None]
